FAERS Safety Report 25112845 (Version 1)
Quarter: 2025Q1

REPORT INFORMATION
  Report Type: Spontaneous
  Country: SG (occurrence: SG)
  Receive Date: 20250324
  Receipt Date: 20250324
  Transmission Date: 20250408
  Serious: Yes (Other)
  Sender: INSUD PHARMA
  Company Number: SG-INSUD PHARMA-2503SG02109

PATIENT

DRUGS (8)
  1. OMEPRAZOLE [Suspect]
     Active Substance: OMEPRAZOLE
     Indication: Product used for unknown indication
     Route: 065
     Dates: end: 201508
  2. RITUXIMAB [Suspect]
     Active Substance: RITUXIMAB
     Indication: Lupus nephritis
     Route: 065
  3. SULFAMETHOXAZOLE\TRIMETHOPRIM [Suspect]
     Active Substance: SULFAMETHOXAZOLE\TRIMETHOPRIM
     Indication: Product used for unknown indication
     Route: 065
  4. PREDNISOLONE [Concomitant]
     Active Substance: PREDNISOLONE
     Indication: Lupus nephritis
     Dosage: 5 MILLIGRAM, QD
     Dates: end: 201508
  5. PREDNISOLONE [Concomitant]
     Active Substance: PREDNISOLONE
     Dosage: 60 MILLIGRAM, QD
     Dates: start: 201512
  6. MYCOPHENOLATE MOFETIL [Concomitant]
     Active Substance: MYCOPHENOLATE MOFETIL
     Indication: Lupus nephritis
     Dosage: 1 GRAM, QD
     Dates: end: 201508
  7. MYCOPHENOLATE MOFETIL [Concomitant]
     Active Substance: MYCOPHENOLATE MOFETIL
     Dosage: 3 GRAM, QD
     Dates: start: 201512
  8. HYDROXYCHLOROQUINE [Concomitant]
     Active Substance: HYDROXYCHLOROQUINE
     Indication: Lupus nephritis
     Dosage: 400 MILLIGRAM, QD
     Dates: start: 201210, end: 201508

REACTIONS (8)
  - Acute kidney injury [Recovering/Resolving]
  - Dyspnoea exertional [Recovering/Resolving]
  - Diarrhoea [Recovering/Resolving]
  - Urine output decreased [Recovering/Resolving]
  - Face oedema [Recovering/Resolving]
  - Jugular vein distension [Recovering/Resolving]
  - Gravitational oedema [Recovering/Resolving]
  - Metabolic acidosis [Recovering/Resolving]
